FAERS Safety Report 19000402 (Version 1)
Quarter: 2021Q1

REPORT INFORMATION
  Report Type: Spontaneous
  Country: DE (occurrence: DE)
  Receive Date: 20210311
  Receipt Date: 20210311
  Transmission Date: 20210420
  Serious: Yes (Life-Threatening, Hospitalization)
  Sender: FDA-Public Use
  Company Number: DE-TEVA-2021-DE-1887293

PATIENT
  Age: 14 Year
  Sex: Male
  Weight: 42 kg

DRUGS (10)
  1. PREDNISOLON [Suspect]
     Active Substance: PREDNISOLONE
     Indication: TRANSPLANT REJECTION
     Dosage: 40MG ? 20MG ? 0
     Route: 048
     Dates: start: 20191222, end: 20191228
  2. METHYLPREDNISOLON [Suspect]
     Active Substance: METHYLPREDNISOLONE
     Indication: TRANSPLANT REJECTION
     Route: 042
     Dates: start: 20191218, end: 20191221
  3. BICANORM [Concomitant]
     Active Substance: SODIUM BICARBONATE
     Indication: RENAL TUBULAR ACIDOSIS
     Dosage: DAILY DOSE: 6 G GRAM(S) EVERY DAYS 3 SEPARATED DOSES
     Route: 048
     Dates: start: 201009
  4. TACROLIMUS. [Concomitant]
     Active Substance: TACROLIMUS
     Indication: RENAL TRANSPLANT
     Dosage: DAILY DOSE: 4.4 MG MILLGRAM(S) EVERY DAYS 2 SEPARATED DOSES
     Route: 048
     Dates: start: 201703
  5. CELLCEPT 200MG/ML SAFT [Concomitant]
     Indication: RENAL TRANSPLANT
     Dosage: DAILY DOSE: 800 MG MILLGRAM(S) EVERY DAYS 2 SEPARATED DOSES
     Route: 048
     Dates: start: 201011
  6. VIGANTOL OEL 20000IE/ML [Concomitant]
     Indication: VITAMIN D DEFICIENCY
     Dosage: 1000 IU (INTERNATIONAL UNIT) DAILY;
     Route: 048
  7. AMLODIPIN [Concomitant]
     Active Substance: AMLODIPINE BESYLATE
     Indication: RENAL HYPERTENSION
     Dosage: DAILY DOSE: 10 MG MILLGRAM(S) EVERY DAYS 2 SEPARATED DOSES
     Route: 048
     Dates: start: 20170901
  8. MAGNESIUM VERLA N [Concomitant]
     Active Substance: MAGNESIUM
     Indication: BLOOD MAGNESIUM ABNORMAL
     Dosage: 2 DOSAGE FORMS DAILY;
     Route: 048
     Dates: start: 20180205
  9. EINSALPHA TROPFEN [Concomitant]
     Indication: CHRONIC KIDNEY DISEASE-MINERAL AND BONE DISORDER
     Dosage: 18 GTT DAILY;
     Route: 048
     Dates: start: 20100630
  10. FERRUM HAUSMANN 50MG/ML [Concomitant]
     Indication: IRON DEFICIENCY
     Dosage: 40 GTT DAILY;
     Route: 048
     Dates: start: 201907

REACTIONS (6)
  - Abdominal distension [Recovered/Resolved]
  - Food craving [Recovered/Resolved]
  - Weight increased [Recovered/Resolved]
  - Acute kidney injury [Recovered/Resolved]
  - Complications of transplant surgery [Recovered/Resolved]
  - Oedema [Recovered/Resolved]

NARRATIVE: CASE EVENT DATE: 20191227
